FAERS Safety Report 18302165 (Version 1)
Quarter: 2020Q3

REPORT INFORMATION
  Report Type: Report from Study
  Country: DE (occurrence: DE)
  Receive Date: 20200923
  Receipt Date: 20200923
  Transmission Date: 20201103
  Serious: Yes (Hospitalization)
  Sender: FDA-Public Use
  Company Number: DE-MYLANLABS-2020M1079890

PATIENT
  Sex: Female
  Weight: 105 kg

DRUGS (2)
  1. HULIO [Suspect]
     Active Substance: ADALIMUMAB-FKJP
     Indication: PRODUCT USED FOR UNKNOWN INDICATION
     Dosage: 40 MILLIGRAM
     Dates: start: 20200731
  2. SKILARENCE [Suspect]
     Active Substance: DIMETHYL FUMARATE
     Indication: PSORIASIS
     Dosage: 120 MILLIGRAM
     Dates: start: 20200420, end: 20200724

REACTIONS (1)
  - Uterine inflammation [Recovered/Resolved]

NARRATIVE: CASE EVENT DATE: 20200808
